FAERS Safety Report 19706839 (Version 1)
Quarter: 2021Q3

REPORT INFORMATION
  Report Type: Spontaneous
  Country: US (occurrence: US)
  Receive Date: 20210816
  Receipt Date: 20210816
  Transmission Date: 20211014
  Serious: No
  Sender: FDA-Public Use
  Company Number: None

PATIENT
  Sex: Female

DRUGS (2)
  1. COVID?19 VACCINE NOS. [Suspect]
     Active Substance: COVID-19 VACCINE NOS
  2. AFINITOR [Suspect]
     Active Substance: EVEROLIMUS
     Indication: MALIGNANT NIPPLE NEOPLASM FEMALE
     Route: 048
     Dates: start: 202003

REACTIONS (5)
  - Vaccination complication [None]
  - Dizziness [None]
  - Nausea [None]
  - Pain in extremity [None]
  - Pyrexia [None]
